FAERS Safety Report 10384797 (Version 1)
Quarter: 2014Q3

REPORT INFORMATION
  Report Type: Spontaneous
  Country: US (occurrence: US)
  Receive Date: 20140814
  Receipt Date: 20140814
  Transmission Date: 20150326
  Serious: No
  Sender: FDA-Public Use
  Company Number: US-BAYER-2014-121370

PATIENT
  Age: 30 Year
  Sex: Male
  Weight: 51 kg

DRUGS (2)
  1. ALEVE [Suspect]
     Active Substance: NAPROXEN SODIUM
     Indication: HEADACHE
     Dosage: 2 DF, EVERY 4 TO 6 HOURS
     Route: 048
     Dates: start: 20140802, end: 20140803
  2. ALEVE [Suspect]
     Active Substance: NAPROXEN SODIUM
     Indication: ANALGESIC THERAPY
     Dosage: 2 DF, EVERY FOUR TO SIX HOURS
     Route: 048
     Dates: start: 20140802, end: 20140803

REACTIONS (2)
  - Drug ineffective [None]
  - Incorrect dose administered [None]

NARRATIVE: CASE EVENT DATE: 20140802
